FAERS Safety Report 21998133 (Version 1)
Quarter: 2023Q1

REPORT INFORMATION
  Report Type: Spontaneous
  Country: US (occurrence: US)
  Receive Date: 20230216
  Receipt Date: 20230216
  Transmission Date: 20230418
  Serious: Yes (Other)
  Sender: FDA-Public Use
  Company Number: US-BRISTOL-MYERS SQUIBB COMPANY-2023-022523

PATIENT
  Age: 75 Year
  Sex: Female

DRUGS (1)
  1. LENALIDOMIDE [Suspect]
     Active Substance: LENALIDOMIDE
     Indication: Plasma cell myeloma
     Dosage: TAKE 1 CAP BY MOUTH DAILY FOR 21 DAYS ON 7 DAYS OFF EVERY 28 DAYS. RESTART AFTER WOUND HAS BEEN EVAL
     Route: 048

REACTIONS (1)
  - Adverse event [Recovered/Resolved]
